FAERS Safety Report 17973447 (Version 1)
Quarter: 2020Q3

REPORT INFORMATION
  Report Type: Spontaneous
  Country: US (occurrence: US)
  Receive Date: 20200702
  Receipt Date: 20200702
  Transmission Date: 20201103
  Serious: No
  Sender: FDA-Public Use
  Company Number: US-AXELLIA-003165

PATIENT
  Sex: Female

DRUGS (1)
  1. COLISTIMETHATE [Suspect]
     Active Substance: COLISTIMETHATE SODIUM
     Indication: PRODUCT USED FOR UNKNOWN INDICATION
     Dosage: STRENGTH: 150 MG/VIAL; DAILY DOSE: 2 TREATMENTS/DAY

REACTIONS (1)
  - Wrong technique in product usage process [Unknown]
